FAERS Safety Report 17864292 (Version 1)
Quarter: 2020Q2

REPORT INFORMATION
  Report Type: Spontaneous
  Country: US (occurrence: US)
  Receive Date: 20200604
  Receipt Date: 20200604
  Transmission Date: 20200714
  Serious: Yes (Other)
  Sender: FDA-Public Use
  Company Number: None

PATIENT
  Sex: Female

DRUGS (2)
  1. DIAZEPAM. [Suspect]
     Active Substance: DIAZEPAM
  2. DIAZEPAM. [Suspect]
     Active Substance: DIAZEPAM

REACTIONS (4)
  - Product substitution issue [None]
  - Drug ineffective [None]
  - Product quality issue [None]
  - Withdrawal syndrome [None]
